FAERS Safety Report 7576910-3 (Version None)
Quarter: 2011Q2

REPORT INFORMATION
  Report Type: 
  Country: None (occurrence: None)
  Receive Date: 20110624
  Receipt Date: 20110624
  Transmission Date: 20111010
  Serious: Yes (Other)
  Sender: FDA-Public Use
  Company Number: None

PATIENT
  Age: 34 Year
  Sex: Female
  Weight: 50.8029 kg

DRUGS (1)
  1. MIRENA [Suspect]
     Indication: CONTRACEPTION
     Dates: start: 20110322, end: 20110405

REACTIONS (13)
  - HEADACHE [None]
  - TINNITUS [None]
  - OVARIAN CYST [None]
  - DEPRESSION [None]
  - DEVICE DIFFICULT TO USE [None]
  - AGITATION [None]
  - DIZZINESS [None]
  - ANXIETY [None]
  - HYPOAESTHESIA [None]
  - FATIGUE [None]
  - PARAESTHESIA [None]
  - ASTHENIA [None]
  - DEVICE DISLOCATION [None]
